FAERS Safety Report 4749594-7 (Version None)
Quarter: 2005Q3

REPORT INFORMATION
  Report Type: 
  Country: None (occurrence: None)
  Receive Date: 20050822
  Receipt Date: 20050810
  Transmission Date: 20060218
  Serious: Yes (Hospitalization)
  Sender: FDA-Public Use
  Company Number: US-NOVOPROD-246200

PATIENT
  Age: 16 Year
  Sex: Male
  Weight: 26 kg

DRUGS (3)
  1. NOVOSEVEN [Suspect]
     Indication: HAEMOPHILIA A WITH ANTI FACTOR VIII
     Dosage: 4.8 MG EVERY 3 HOURS
     Route: 042
     Dates: start: 20050621, end: 20050702
  2. NOVOSEVEN [Suspect]
     Dosage: 4.8 MG EVERY 6 HOURS
     Route: 042
  3. NOVOSEVEN [Suspect]
     Dosage: 4.8 MG EVERY 8 HOURS
     Route: 042
     Dates: end: 20050702

REACTIONS (1)
  - HAEMATURIA [None]
